FAERS Safety Report 9275946 (Version 1)
Quarter: 2013Q2

REPORT INFORMATION
  Report Type: Spontaneous
  Country: US (occurrence: None)
  Receive Date: 20130502
  Receipt Date: 20130502
  Transmission Date: 20140414
  Serious: Yes (Other)
  Sender: FDA-Public Use
  Company Number: None

PATIENT
  Age: 7 Year
  Sex: Male
  Weight: 22.68 kg

DRUGS (1)
  1. SINGULAIR [Suspect]
     Indication: RHINITIS ALLERGIC
     Dosage: 5 MG CHEW
     Route: 048
     Dates: start: 20130401, end: 20130426

REACTIONS (11)
  - Psychomotor hyperactivity [None]
  - Headache [None]
  - Abdominal pain upper [None]
  - Aggression [None]
  - Aggression [None]
  - Decreased interest [None]
  - Paranoia [None]
  - Abnormal behaviour [None]
  - Insomnia [None]
  - Nightmare [None]
  - Suicidal ideation [None]
